FAERS Safety Report 8097792-X (Version None)
Quarter: 2012Q1

REPORT INFORMATION
  Report Type: 
  Country: None (occurrence: None)
  Receive Date: 20120128
  Receipt Date: 20110718
  Transmission Date: 20120608
  Serious: No
  Sender: FDA-Public Use
  Company Number: US-ABBOTT-11P-163-0840010-00

PATIENT
  Age: 23 Year
  Sex: Female

DRUGS (3)
  1. TRAMADOL HCL [Concomitant]
     Indication: ANKYLOSING SPONDYLITIS
     Dosage: PRN FOR PAIN
  2. HUMIRA [Suspect]
     Indication: ANKYLOSING SPONDYLITIS
     Dates: start: 20110501
  3. IBUPROFEN [Concomitant]
     Indication: ANKYLOSING SPONDYLITIS
     Dosage: 800 MG PRN FOR PAIN

REACTIONS (1)
  - URINARY TRACT INFECTION [None]
